FAERS Safety Report 7167950-7 (Version None)
Quarter: 2010Q4

REPORT INFORMATION
  Report Type: 
  Country: None (occurrence: None)
  Receive Date: 20101216
  Receipt Date: 20101012
  Transmission Date: 20110411
  Serious: Yes (Other)
  Sender: FDA-Public Use
  Company Number: CA-NAPPMUNDI-CAN-2010-0001644

PATIENT
  Sex: Male

DRUGS (1)
  1. OXYCONTIN [Suspect]
     Indication: PAIN
     Dosage: UNK
     Route: 048
     Dates: start: 20000101

REACTIONS (5)
  - DRUG DEPENDENCE [None]
  - MALAISE [None]
  - MUSCULAR WEAKNESS [None]
  - SOCIAL PROBLEM [None]
  - TOOTH LOSS [None]
